FAERS Safety Report 5405659-8 (Version None)
Quarter: 2007Q3

REPORT INFORMATION
  Report Type: 
  Country: None (occurrence: None)
  Receive Date: 20070806
  Receipt Date: 20070731
  Transmission Date: 20080115
  Serious: Yes (Hospitalization, Other)
  Sender: FDA-Public Use
  Company Number: PHBS2007FR11906

PATIENT
  Age: 39 Year
  Sex: Female

DRUGS (4)
  1. TAREG [Suspect]
     Dosage: 80 MG/DAY
     Route: 048
  2. LOXEN [Concomitant]
     Indication: HYPERTENSION
  3. TRANDATE [Concomitant]
     Indication: DIABETES MELLITUS
  4. ALDOMET [Concomitant]
     Indication: HYPERTENSION
     Dosage: 25 MG, TID

REACTIONS (11)
  - ACCIDENTAL EXPOSURE [None]
  - BLOOD URIC ACID [None]
  - CAESAREAN SECTION [None]
  - DRUG EXPOSURE DURING PREGNANCY [None]
  - FOETAL DISORDER [None]
  - FOETAL HEART RATE ABNORMAL [None]
  - OLIGOHYDRAMNIOS [None]
  - OLIGURIA [None]
  - PRE-ECLAMPSIA [None]
  - PREMATURE BABY [None]
  - PROTEINURIA [None]
